FAERS Safety Report 5170895-5 (Version None)
Quarter: 2006Q4

REPORT INFORMATION
  Report Type: 
  Country: None (occurrence: None)
  Receive Date: 20061213
  Receipt Date: 20061204
  Transmission Date: 20070319
  Serious: Yes (Hospitalization)
  Sender: FDA-Public Use
  Company Number: US-JNJFOC-20061201335

PATIENT
  Sex: Female
  Weight: 167.83 kg

DRUGS (7)
  1. DURAGESIC-100 [Suspect]
     Route: 062
  2. DURAGESIC-100 [Suspect]
     Route: 062
  3. DURAGESIC-100 [Suspect]
     Indication: DRUG USE FOR UNKNOWN INDICATION
     Route: 062
  4. LEXAPRO [Concomitant]
     Indication: DEPRESSION
     Route: 065
  5. TRAZODONE HCL [Concomitant]
     Indication: RELAXATION THERAPY
     Route: 048
  6. SEROQUEL [Concomitant]
     Indication: ANXIETY
     Route: 048
  7. DETROL [Concomitant]
     Indication: HYPERTONIC BLADDER
     Route: 065

REACTIONS (2)
  - ANKLE FRACTURE [None]
  - FALL [None]
